FAERS Safety Report 6749961-6 (Version None)
Quarter: 2010Q2

REPORT INFORMATION
  Report Type: 
  Country: None (occurrence: None)
  Receive Date: 20100601
  Receipt Date: 20100521
  Transmission Date: 20101027
  Serious: Yes (Other)
  Sender: FDA-Public Use
  Company Number: AU-JNJCH-2010012723

PATIENT
  Age: 3 Year
  Sex: Male

DRUGS (1)
  1. BENADRYL PE CHESTY COUGH + NASAL CONGESTION [Suspect]
     Indication: NASOPHARYNGITIS
     Dosage: TEXT:2.5ML UNSPECIFIED
     Route: 065
     Dates: start: 20100101, end: 20100101

REACTIONS (12)
  - ABDOMINAL PAIN UPPER [None]
  - ABNORMAL BEHAVIOUR [None]
  - CONFUSIONAL STATE [None]
  - DELIRIUM [None]
  - DYSURIA [None]
  - GENITAL PAIN [None]
  - HYPERHIDROSIS [None]
  - PAIN IN EXTREMITY [None]
  - PSYCHOMOTOR HYPERACTIVITY [None]
  - RESTLESS LEGS SYNDROME [None]
  - SLEEP DISORDER [None]
  - VOMITING [None]
